FAERS Safety Report 20583349 (Version 1)
Quarter: 2022Q1

REPORT INFORMATION
  Report Type: Spontaneous
  Country: US (occurrence: US)
  Receive Date: 20220311
  Receipt Date: 20220311
  Transmission Date: 20220423
  Serious: No
  Sender: FDA-Public Use
  Company Number: US-FOUNDATIONCONSUMERHC-2022-US-000752

PATIENT
  Age: 23 Year
  Sex: Female
  Weight: 43.09 kg

DRUGS (3)
  1. PLAN B ONE-STEP [Suspect]
     Active Substance: LEVONORGESTREL
     Indication: Post coital contraception
     Dosage: 1.5 MG TABLET X 1 DOSE
     Route: 048
     Dates: start: 20220107, end: 20220107
  2. NICOTINE [Concomitant]
     Active Substance: NICOTINE
     Dosage: VAPES, UNSPECIFIED FREQUENCY
     Route: 055
  3. ZZZQUIL NIGHTTIME SLEEP-AID [Concomitant]
     Active Substance: DIPHENHYDRAMINE HYDROCHLORIDE
     Dosage: USED OCCASSIONALLY
     Route: 065

REACTIONS (3)
  - Heavy menstrual bleeding [Not Recovered/Not Resolved]
  - Intentional product misuse [Recovered/Resolved]
  - Inappropriate schedule of product administration [Recovered/Resolved]

NARRATIVE: CASE EVENT DATE: 20220107
